FAERS Safety Report 8072650-5 (Version None)
Quarter: 2012Q1

REPORT INFORMATION
  Report Type: 
  Country: None (occurrence: None)
  Receive Date: 20120120
  Receipt Date: 20120109
  Transmission Date: 20120608
  Serious: Yes (Other)
  Sender: FDA-Public Use
  Company Number: 2012P1002436

PATIENT
  Age: 44 Year
  Sex: Female

DRUGS (3)
  1. SIMVASTATIN [Concomitant]
  2. CLONIDINE [Suspect]
     Indication: HYPERTENSION
     Dosage: 0.3 MG;QW; TDER
     Route: 062
  3. HYDROCHLOROTHIAZIDE [Concomitant]

REACTIONS (9)
  - CORONARY ARTERY DISSECTION [None]
  - CORONARY ARTERY STENOSIS [None]
  - BLOOD PRESSURE DECREASED [None]
  - OVERDOSE [None]
  - VOMITING [None]
  - DIZZINESS [None]
  - FATIGUE [None]
  - CORONARY OSTIAL STENOSIS [None]
  - MYOCARDIAL INFARCTION [None]
